FAERS Safety Report 23426014 (Version 1)
Quarter: 2024Q1

REPORT INFORMATION
  Report Type: Report from Study
  Country: US (occurrence: US)
  Receive Date: 20240122
  Receipt Date: 20240122
  Transmission Date: 20240409
  Serious: Yes (Hospitalization)
  Sender: FDA-Public Use
  Company Number: US-BIOVITRUM-2023-US-017807

PATIENT
  Age: 12 Month
  Sex: Male
  Weight: 9.9 kg

DRUGS (9)
  1. SYNAGIS [Suspect]
     Active Substance: PALIVIZUMAB
     Indication: Bronchopulmonary dysplasia
     Dosage: INJECT 15 MG/KG INTRAMUSCULARLY ONCE MONTHLY (DOSE BASED ON PATIENT^S CURRENT WEIGHT) FOR 5 DOSES
     Route: 030
  2. SYNAGIS [Suspect]
     Active Substance: PALIVIZUMAB
     Indication: Premature baby
  3. ALBUTEROL SULFATE [Concomitant]
     Active Substance: ALBUTEROL SULFATE
     Indication: Product used for unknown indication
  4. SODIUM CHLORIDE [Concomitant]
     Active Substance: SODIUM CHLORIDE
     Indication: Product used for unknown indication
     Dosage: 0.9 PERCENT
  5. BUDESONIDE [Concomitant]
     Active Substance: BUDESONIDE
     Indication: Product used for unknown indication
     Dosage: 0.9 PERCENT
  6. POLY-VI-SOL/IRON [Concomitant]
     Indication: Product used for unknown indication
     Dosage: 0.9 PERCENT
  7. HYDROCORTISONE HYDROCORT [Concomitant]
     Indication: Product used for unknown indication
     Dosage: 0.9 PERCENT
  8. AMOXICILLIN [Concomitant]
     Active Substance: AMOXICILLIN
     Indication: Product used for unknown indication
     Dosage: 0.9 PERCENT
  9. FLOVENT [Concomitant]
     Active Substance: FLUTICASONE PROPIONATE
     Indication: Product used for unknown indication
     Dosage: 0.9 PERCENT

REACTIONS (8)
  - Rhinovirus infection [Unknown]
  - Product dose omission issue [Unknown]
  - Product availability issue [Unknown]
  - Nasopharyngitis [Unknown]
  - Ear infection [Unknown]
  - Sleep apnoea syndrome [Unknown]
  - Gastroenteritis viral [Unknown]
  - Pyrexia [Unknown]
